FAERS Safety Report 17880944 (Version 1)
Quarter: 2020Q2

REPORT INFORMATION
  Report Type: Spontaneous
  Country: US (occurrence: US)
  Receive Date: 20200610
  Receipt Date: 20200610
  Transmission Date: 20200714
  Serious: No
  Sender: FDA-Public Use
  Company Number: US-ENDO PHARMACEUTICALS INC-2019-109224

PATIENT
  Age: 12 Year
  Sex: Female
  Weight: 51.3 kg

DRUGS (2)
  1. FLINSTONE CHEWABLE COMPLETE IRON                          /00023503/ [Concomitant]
     Indication: PRODUCT USED FOR UNKNOWN INDICATION
  2. SUPPRELIN LA [Suspect]
     Active Substance: HISTRELIN ACETATE
     Indication: PRECOCIOUS PUBERTY
     Dosage: 50 MG, ONCE A YEAR
     Route: 058
     Dates: start: 20170605

REACTIONS (4)
  - Blood glucose decreased [Unknown]
  - Short stature [Unknown]
  - Dizziness [Not Recovered/Not Resolved]
  - Weight increased [Unknown]

NARRATIVE: CASE EVENT DATE: 20190815
